FAERS Safety Report 14157031 (Version 1)
Quarter: 2017Q4

REPORT INFORMATION
  Report Type: Spontaneous
  Country: US (occurrence: US)
  Receive Date: 20171103
  Receipt Date: 20171103
  Transmission Date: 20180321
  Serious: Yes (Disabling)
  Sender: FDA-Public Use
  Company Number: None

PATIENT
  Age: 46 Year
  Sex: Female
  Weight: 58.95 kg

DRUGS (20)
  1. TECFIDERA [Concomitant]
     Active Substance: DIMETHYL FUMARATE
  2. IBUPROFEN. [Concomitant]
     Active Substance: IBUPROFEN
  3. BUT/ACETAMINOPHEN CAFF 50-300-40 CP [Suspect]
     Active Substance: ACETAMINOPHEN\BUTABARBITAL\CAFFEINE
     Indication: HEADACHE
     Dosage: ?          OTHER STRENGTH:CP;QUANTITY:1 CAPSULE(S);?
     Route: 048
  4. BACLOFEN. [Concomitant]
     Active Substance: BACLOFEN
  5. LINZESS [Concomitant]
     Active Substance: LINACLOTIDE
  6. LEVOTHROXINE [Concomitant]
     Active Substance: LEVOTHYROXINE
  7. ZOFRAN [Concomitant]
     Active Substance: ONDANSETRON HYDROCHLORIDE
  8. VITAMIN B12 [Concomitant]
     Active Substance: CYANOCOBALAMIN
  9. VITAMIN D [Concomitant]
     Active Substance: CHOLECALCIFEROL
  10. FISH OIL [Concomitant]
     Active Substance: FISH OIL
  11. LEFLUNOMIDE. [Concomitant]
     Active Substance: LEFLUNOMIDE
  12. NEURONTIN [Concomitant]
     Active Substance: GABAPENTIN
  13. ASPIRIN. [Concomitant]
     Active Substance: ASPIRIN
  14. KLONOPIN [Concomitant]
     Active Substance: CLONAZEPAM
  15. UROCIT-K [Concomitant]
     Active Substance: POTASSIUM CITRATE
  16. ALBUTEROL. [Concomitant]
     Active Substance: ALBUTEROL
  17. TYLENOL [Concomitant]
     Active Substance: ACETAMINOPHEN
  18. ADVAIR HFA [Concomitant]
     Active Substance: FLUTICASONE PROPIONATE\SALMETEROL XINAFOATE
  19. PAZEO EYE DROPS [Concomitant]
  20. TUMS [Concomitant]
     Active Substance: CALCIUM CARBONATE

REACTIONS (2)
  - Drug ineffective [None]
  - Product substitution issue [None]

NARRATIVE: CASE EVENT DATE: 20171030
